FAERS Safety Report 8072432-4 (Version None)
Quarter: 2012Q1

REPORT INFORMATION
  Report Type: 
  Country: None (occurrence: None)
  Receive Date: 20120126
  Receipt Date: 20120119
  Transmission Date: 20120608
  Serious: Yes (Hospitalization)
  Sender: FDA-Public Use
  Company Number: BR-US-EMD SERONO, INC.-7093182

PATIENT
  Sex: Female

DRUGS (10)
  1. AMITRIPTYLINE HCL [Concomitant]
  2. REBIF [Suspect]
     Indication: PRODUCT USED FOR UNKNOWN INDICATION
     Dates: start: 20110429
  3. GABAPENTIN [Concomitant]
  4. TILEX [Concomitant]
  5. BLOCK [Concomitant]
  6. HYGROTON [Concomitant]
  7. CLONAZEPAM [Concomitant]
  8. ACETAMINOPHEN [Concomitant]
  9. MORPHINE [Concomitant]
  10. AMLODIPINE [Concomitant]

REACTIONS (4)
  - HYPERTENSION [None]
  - HEADACHE [None]
  - INJECTION SITE ERYTHEMA [None]
  - CEREBRAL CYST [None]
